FAERS Safety Report 4776960-6 (Version None)
Quarter: 2005Q3

REPORT INFORMATION
  Report Type: 
  Country: None (occurrence: None)
  Receive Date: 20050921
  Receipt Date: 20050902
  Transmission Date: 20060218
  Serious: Yes (Hospitalization, Other)
  Sender: FDA-Public Use
  Company Number: US_0402101053

PATIENT
  Age: 50 Year
  Sex: Male
  Weight: 102 kg

DRUGS (8)
  1. HUMALOG MIX 75/25 [Suspect]
     Indication: DIABETES MELLITUS
     Dosage: 90 U DAY
  2. HUMULIN R [Suspect]
     Indication: DIABETES MELLITUS
     Dates: start: 19880101
  3. HUMULIN N [Suspect]
     Indication: DIABETES MELLITUS
     Dates: start: 19880101, end: 19920101
  4. HUMULIN 70/30 [Suspect]
     Indication: DIABETES MELLITUS
     Dates: start: 19920101
  5. COUMADIN [Concomitant]
  6. CLOPIDOGREL [Concomitant]
  7. METFORMIN HYDROCHLORIDE [Concomitant]
  8. TROGLITAZONE [Concomitant]

REACTIONS (21)
  - ARRHYTHMIA [None]
  - BLINDNESS UNILATERAL [None]
  - BLOOD GLUCOSE DECREASED [None]
  - BODY HEIGHT DECREASED [None]
  - CARDIAC DISORDER [None]
  - DIABETES MELLITUS INADEQUATE CONTROL [None]
  - EYE DISORDER [None]
  - EYE HAEMORRHAGE [None]
  - FALL [None]
  - FEELING ABNORMAL [None]
  - FLUID RETENTION [None]
  - GALLBLADDER OPERATION [None]
  - INFECTION [None]
  - MACULAR DEGENERATION [None]
  - MEDICAL DEVICE COMPLICATION [None]
  - MULTIPLE ALLERGIES [None]
  - PHARMACEUTICAL PRODUCT COMPLAINT [None]
  - PYREXIA [None]
  - RETINOPATHY [None]
  - SHOULDER PAIN [None]
  - UPPER LIMB FRACTURE [None]
